FAERS Safety Report 11248065 (Version 3)
Quarter: 2016Q3

REPORT INFORMATION
  Report Type: Report from Study
  Country: GB (occurrence: GB)
  Receive Date: 20150708
  Receipt Date: 20160720
  Transmission Date: 20161109
  Serious: Yes (Hospitalization)
  Sender: FDA-Public Use
  Company Number: GB-ABBVIE-15P-167-1420404-00

PATIENT
  Age: 3 Year
  Sex: Female
  Weight: 19.3 kg

DRUGS (8)
  1. CALPOL [Concomitant]
     Active Substance: ACETAMINOPHEN
     Indication: VIRAL SEPSIS
     Route: 048
     Dates: start: 20140206, end: 20140226
  2. FOLIC ACID. [Concomitant]
     Active Substance: FOLIC ACID
     Indication: UVEITIS
     Route: 048
     Dates: start: 20130822
  3. CYCLOPENTOLATE. [Concomitant]
     Active Substance: CYCLOPENTOLATE
     Indication: UVEITIS
     Dosage: AT HS
     Route: 047
     Dates: start: 20140123, end: 20140619
  4. DEXAMETHASONE. [Concomitant]
     Active Substance: DEXAMETHASONE
     Indication: UVEITIS
     Dosage: 3DROPS LEFT EYE, 2DROPS RIGHT EYE
     Route: 047
     Dates: start: 20140102, end: 20140313
  5. HUMIRA [Suspect]
     Active Substance: ADALIMUMAB
     Indication: UVEITIS
     Route: 058
     Dates: start: 20140214, end: 20150605
  6. METHOTREXATE. [Concomitant]
     Active Substance: METHOTREXATE
     Indication: UVEITIS
     Route: 048
     Dates: start: 20130822
  7. VZIG [Concomitant]
     Indication: EXPOSURE TO COMMUNICABLE DISEASE
     Dosage: 2 DOSES
     Route: 014
     Dates: start: 20140306, end: 20140306
  8. DEXAMETHASONE. [Concomitant]
     Active Substance: DEXAMETHASONE
     Indication: UVEITIS
     Dosage: 2 DROPS BOTH EYES
     Route: 047
     Dates: start: 20140313, end: 20141009

REACTIONS (24)
  - Lymphadenopathy [Recovered/Resolved]
  - Adenoidectomy [Recovered/Resolved]
  - Cough [Recovered/Resolved]
  - Skin papilloma [Unknown]
  - Pyrexia [Recovered/Resolved]
  - Varicella [Recovered/Resolved]
  - Diarrhoea [Recovered/Resolved]
  - Candida infection [Unknown]
  - Tonsillectomy [Recovered/Resolved]
  - Epistaxis [Recovered/Resolved]
  - Intraocular pressure increased [Recovered/Resolved]
  - Oropharyngeal pain [Recovered/Resolved]
  - Skin papilloma [Recovered/Resolved]
  - Pyrexia [Recovered/Resolved]
  - Pyrexia [Recovered/Resolved]
  - Paraesthesia [Recovered/Resolved]
  - Dyspnoea [Unknown]
  - Tonsillar hypertrophy [Recovered/Resolved]
  - Tonsillitis [Unknown]
  - Anosmia [Unknown]
  - Cough [Recovered/Resolved]
  - Diarrhoea [Recovered/Resolved]
  - Genital pain [Unknown]
  - Ear infection [Unknown]

NARRATIVE: CASE EVENT DATE: 20140218
